FAERS Safety Report 8991080 (Version 2)
Quarter: 2013Q1

REPORT INFORMATION
  Report Type: Spontaneous
  Country: US (occurrence: US)
  Receive Date: 20121231
  Receipt Date: 20130313
  Transmission Date: 20140127
  Serious: Yes (Death, Hospitalization, Other)
  Sender: FDA-Public Use
  Company Number: US-AMGEN-USASP2012083897

PATIENT
  Age: 84 Year
  Sex: Male
  Weight: 76.74 kg

DRUGS (15)
  1. PROCRIT [Suspect]
     Indication: NEPHROGENIC ANAEMIA
     Dosage: 30000 UNIT, QWK
     Route: 058
     Dates: start: 20120131, end: 20121018
  2. PROCRIT [Suspect]
     Indication: MYELODYSPLASTIC SYNDROME
  3. PREDNISONE [Concomitant]
     Dosage: 5 MG, QD
     Route: 048
     Dates: start: 20121026
  4. POTASSIUM [Concomitant]
     Dosage: 10 MEQ, BID
     Route: 048
     Dates: start: 20121026
  5. CICLOPIROX [Concomitant]
     Dosage: 0.7 %, BID
     Dates: start: 20121026
  6. DOCUSATE SODIUM [Concomitant]
     Dosage: 100 MG, BID
     Route: 048
     Dates: start: 20121026
  7. HYOSCYAMINE [Concomitant]
     Dosage: 0.125 MG, AS NEEDED EVERY 4 HOURS
     Route: 048
     Dates: start: 20121026
  8. ROXANOL [Concomitant]
     Dosage: 5 MG, AS NEEDED 4 HOURS
     Route: 048
     Dates: start: 20121026
  9. ROXANOL [Concomitant]
     Dosage: 1 ML, FOR 4 HOURS/PRN
     Route: 048
     Dates: start: 20121028
  10. TYLENOL /00020001/ [Concomitant]
     Indication: PYREXIA
     Dosage: 650MG, EVERY 4 HOURS/PRN
     Dates: start: 20121026
  11. OXYGEN [Concomitant]
     Indication: CHRONIC OBSTRUCTIVE PULMONARY DISEASE
     Dosage: UNK, AT 2-3 LPM VIA NASSAL CANULE FOR COMFORT
     Dates: start: 20121026
  12. ATROVENT [Concomitant]
     Indication: CHRONIC OBSTRUCTIVE PULMONARY DISEASE
     Dosage: UNK
  13. ATROVENT [Concomitant]
     Dosage: 70 MUG, 2 PUFFS INHALE
     Dates: start: 20121026
  14. COUMADIN                           /00014802/ [Concomitant]
     Dosage: UNK
  15. ASPIRIN [Concomitant]
     Indication: ATRIAL FIBRILLATION
     Dosage: 81 MG, QD
     Route: 048

REACTIONS (18)
  - Aortic stenosis [Unknown]
  - Appendicectomy [Unknown]
  - Gastrointestinal haemorrhage [Unknown]
  - Cor pulmonale [Unknown]
  - Tonsillectomy [Unknown]
  - Cardiac failure congestive [Fatal]
  - Hypertension [Unknown]
  - Osteoarthritis [Unknown]
  - Pain [Unknown]
  - Asthenia [Unknown]
  - Femoral artery aneurysm [Unknown]
  - Arthroscopy [Unknown]
  - Dyslipidaemia [Unknown]
  - Gastrooesophageal reflux disease [Unknown]
  - Anxiety [Unknown]
  - Constipation [Unknown]
  - Oedema peripheral [Unknown]
  - Insomnia [Unknown]
